FAERS Safety Report 23600391 (Version 3)
Quarter: 2024Q2

REPORT INFORMATION
  Report Type: Spontaneous
  Country: SY (occurrence: None)
  Receive Date: 20240306
  Receipt Date: 20240504
  Transmission Date: 20240715
  Serious: Yes (Death)
  Sender: FDA-Public Use
  Company Number: SY-ROCHE-3521035

PATIENT

DRUGS (1)
  1. GAZYVA [Suspect]
     Active Substance: OBINUTUZUMAB
     Indication: Chronic lymphocytic leukaemia
     Dosage: FIRST CYCLE ON DAY 1 (100 MG)
     Route: 042

REACTIONS (1)
  - Hypersensitivity [Fatal]
